APPROVED DRUG PRODUCT: CALCIPOTRIENE
Active Ingredient: CALCIPOTRIENE
Strength: 0.005%
Dosage Form/Route: SOLUTION;TOPICAL
Application: A078468 | Product #001 | TE Code: AT
Applicant: COSETTE PHARMACEUTICALS INC
Approved: Mar 24, 2011 | RLD: No | RS: Yes | Type: RX